FAERS Safety Report 13164657 (Version 1)
Quarter: 2017Q1

REPORT INFORMATION
  Report Type: Report from Study
  Country: None (occurrence: AU)
  Receive Date: 20170130
  Receipt Date: 20170130
  Transmission Date: 20170428
  Serious: Yes (Other)
  Sender: FDA-Public Use
  Company Number: AU-ABBVIE-17P-008-1852292-00

PATIENT
  Sex: Female

DRUGS (1)
  1. HUMIRA [Suspect]
     Active Substance: ADALIMUMAB
     Indication: RHEUMATOID ARTHRITIS
     Route: 058
     Dates: end: 201611

REACTIONS (2)
  - Cardiac disorder [Unknown]
  - Pain [Unknown]
